FAERS Safety Report 20512278 (Version 1)
Quarter: 2022Q1

REPORT INFORMATION
  Report Type: Spontaneous
  Country: US (occurrence: None)
  Receive Date: 20220223
  Receipt Date: 20220223
  Transmission Date: 20220423
  Serious: Yes (Other)
  Sender: FDA-Public Use
  Company Number: None

PATIENT
  Age: 45 Year
  Sex: Female

DRUGS (3)
  1. GUANFACINE EXTENDED-RELEASE [Suspect]
     Active Substance: GUANFACINE
     Indication: Attention deficit hyperactivity disorder
     Dosage: FREQUENCY : DAILY;?
     Route: 048
     Dates: start: 20210507
  2. TRAZODONE [Concomitant]
  3. VENLAFAXINE [Concomitant]

REACTIONS (6)
  - Headache [None]
  - Mood altered [None]
  - Anxiety [None]
  - Dyspnoea [None]
  - Chest discomfort [None]
  - Panic attack [None]

NARRATIVE: CASE EVENT DATE: 20220209
